FAERS Safety Report 6643449-9 (Version None)
Quarter: 2010Q1

REPORT INFORMATION
  Report Type: 
  Country: None (occurrence: None)
  Receive Date: 20100319
  Receipt Date: 20100308
  Transmission Date: 20100710
  Serious: Yes (Hospitalization)
  Sender: FDA-Public Use
  Company Number: IT-WATSON-2010-02829

PATIENT
  Age: 46 Year
  Sex: Female

DRUGS (2)
  1. FENTANYL [Suspect]
     Indication: PAIN
     Dosage: 400 U/G, DAILY
     Route: 048
  2. METHADONE HCL [Suspect]
     Indication: PAIN MANAGEMENT
     Dosage: 12 MG, DAILY
     Route: 042

REACTIONS (3)
  - CONFUSIONAL STATE [None]
  - MYOCLONUS [None]
  - SOMNOLENCE [None]
